FAERS Safety Report 10218625 (Version 1)
Quarter: 2014Q1

REPORT INFORMATION
  Report Type: Spontaneous
  Country: US (occurrence: None)
  Receive Date: 20140306
  Receipt Date: 20140306
  Transmission Date: 20141002
  Serious: Yes (Disabling, Other)
  Sender: FDA-Public Use
  Company Number: 163-21880-13054211

PATIENT
  Age: 51 Year
  Sex: Female

DRUGS (2)
  1. REVLIMID [Suspect]
     Indication: PLASMA CELL MYELOMA
     Dosage: 14 IN 21 D
     Route: 048
     Dates: start: 20130508
  2. ASA (ACETYLSALICYLIC ACID) [Concomitant]

REACTIONS (5)
  - Myalgia [None]
  - Constipation [None]
  - Dysgeusia [None]
  - Oedema peripheral [None]
  - Pain in extremity [None]
